FAERS Safety Report 24448083 (Version 1)
Quarter: 2024Q4

REPORT INFORMATION
  Report Type: Report from Study
  Country: DE (occurrence: DE)
  Receive Date: 20241016
  Receipt Date: 20241016
  Transmission Date: 20250115
  Serious: Yes (Other)
  Sender: SANDOZ
  Company Number: DE-SANDOZ-SDZ2024DE074246

PATIENT
  Sex: Female
  Weight: 70 kg

DRUGS (6)
  1. SOMATROPIN [Suspect]
     Active Substance: SOMATROPIN
     Indication: Growth hormone deficiency
     Dosage: 0.2 MG
     Route: 058
     Dates: start: 202208
  2. AMLODIPINE [Concomitant]
     Active Substance: AMLODIPINE BESYLATE
     Indication: Product used for unknown indication
     Dosage: 2.5 MG, QD
     Route: 065
  3. HYDROCORTISONE [Concomitant]
     Active Substance: HYDROCORTISONE
     Indication: Product used for unknown indication
     Dosage: 10 MG (1 1/2 - 1/2 - 0 (2-5 TIMES THE DOSAGE IN CRISIS SITUATIONS)
     Route: 065
  4. RAMIPRIL [Concomitant]
     Active Substance: RAMIPRIL
     Indication: Product used for unknown indication
     Dosage: 5 MG, BID
     Route: 065
  5. RISEDRONATE SODIUM [Concomitant]
     Active Substance: RISEDRONATE SODIUM
     Indication: Osteoporosis
     Dosage: UNK
     Route: 065
     Dates: start: 202301, end: 202302
  6. Vigantol [Concomitant]
     Indication: Product used for unknown indication
     Dosage: 1000 IU, QD
     Route: 065

REACTIONS (2)
  - Uveitis [Recovered/Resolved]
  - Gastroenteritis [Recovered/Resolved]

NARRATIVE: CASE EVENT DATE: 20230201
